FAERS Safety Report 18430751 (Version 3)
Quarter: 2021Q2

REPORT INFORMATION
  Report Type: Report from Study
  Country: AU (occurrence: AU)
  Receive Date: 20201027
  Receipt Date: 20210504
  Transmission Date: 20210717
  Serious: Yes (Other)
  Sender: FDA-Public Use
  Company Number: AU-TAKEDA-2020TUS040825

PATIENT
  Age: 77 Year
  Sex: Female

DRUGS (15)
  1. CARTIA [ACETYLSALICYLIC ACID] [Concomitant]
     Active Substance: ASPIRIN
     Dosage: 100 MILLIGRAM
  2. SOMAC [Concomitant]
     Active Substance: PANTOPRAZOLE SODIUM
     Dosage: 40 MILLIGRAM
  3. RAMIPRIL. [Concomitant]
     Active Substance: RAMIPRIL
     Dosage: 2.5 MILLIGRAM
     Dates: start: 20210402
  4. VEDOLIZUMAB [Suspect]
     Active Substance: VEDOLIZUMAB
     Dosage: 300 MILLIGRAM, Q4WEEKS
     Route: 042
  5. MEGAFOL [Concomitant]
     Active Substance: FOLIC ACID
     Dosage: 5 MILLIGRAM, 1/WEEK
  6. APO?BISOPROLOL [Concomitant]
     Active Substance: BISOPROLOL FUMARATE
     Dosage: 2.5 MILLIGRAM
     Route: 048
     Dates: start: 20210402
  7. DIABEX [Concomitant]
     Active Substance: METFORMIN HYDROCHLORIDE
     Dosage: 500 MILLIGRAM, QD
  8. DILTIAZEM HYDROCHLORIDE. [Concomitant]
     Active Substance: DILTIAZEM HYDROCHLORIDE
     Dosage: 240 MILLIGRAM
  9. METHOTREXATE. [Concomitant]
     Active Substance: METHOTREXATE
     Dosage: 10 MILLIGRAM, 1/WEEK
     Route: 048
  10. PANAFCORT [Concomitant]
     Active Substance: PREDNISONE
     Dosage: 5 MILLIGRAM, BID
  11. TREXJECT [Concomitant]
     Active Substance: METHOTREXATE SODIUM
     Dosage: UNK UNK, 1/WEEK
  12. ROSUVASTATIN. [Concomitant]
     Active Substance: ROSUVASTATIN
     Dosage: 5 MILLIGRAM, QD
     Route: 048
  13. VEDOLIZUMAB [Suspect]
     Active Substance: VEDOLIZUMAB
     Indication: CROHN^S DISEASE
     Dosage: 300 MILLIGRAM
     Route: 042
  14. TRAMADOL HYDROCHLORIDE. [Concomitant]
     Active Substance: TRAMADOL HYDROCHLORIDE
     Dosage: 15 MILLIGRAM, BID
  15. SIFROL [Concomitant]
     Active Substance: PRAMIPEXOLE
     Dosage: 0.125 MILLIGRAM, QD

REACTIONS (6)
  - Dizziness [Recovered/Resolved]
  - Frequent bowel movements [Unknown]
  - Diarrhoea [Unknown]
  - Therapeutic response decreased [Unknown]
  - Crohn^s disease [Unknown]
  - Abdominal discomfort [Unknown]

NARRATIVE: CASE EVENT DATE: 20210402
